FAERS Safety Report 13924587 (Version 1)
Quarter: 2017Q3

REPORT INFORMATION
  Report Type: Spontaneous
  Country: TR (occurrence: TR)
  Receive Date: 20170831
  Receipt Date: 20170831
  Transmission Date: 20171127
  Serious: Yes (Hospitalization, Other)
  Sender: FDA-Public Use
  Company Number: TR-ASTRAZENECA-2017SE87878

PATIENT
  Age: 64 Year
  Sex: Female

DRUGS (11)
  1. CIPRALEX [Concomitant]
     Active Substance: ESCITALOPRAM OXALATE
     Indication: DEPRESSION
  2. BYETTA [Suspect]
     Active Substance: EXENATIDE
     Dosage: 10.0UG UNKNOWN
     Route: 065
     Dates: start: 201706
  3. ASPIRIN. [Concomitant]
     Active Substance: ASPIRIN
     Route: 048
  4. NEURONTIN [Concomitant]
     Active Substance: GABAPENTIN
     Indication: NEURALGIA
     Route: 048
  5. EXTRAIR [Concomitant]
     Indication: ASTHMA
     Dosage: 12 MCG/400 MCG, TWO TIMES A DAY
     Route: 055
  6. BYETTA [Suspect]
     Active Substance: EXENATIDE
     Dosage: 10.0UG UNKNOWN
     Route: 065
  7. CO-DIOVAN [Concomitant]
     Active Substance: HYDROCHLOROTHIAZIDE\VALSARTAN
     Indication: HYPERTENSION
     Dosage: 160/12.5 MG, DAILY
     Route: 048
  8. LANTUS [Concomitant]
     Active Substance: INSULIN GLARGINE
     Indication: DIABETES MELLITUS
     Dosage: DAILY
     Route: 058
  9. BYETTA [Suspect]
     Active Substance: EXENATIDE
     Dosage: 5.0UG UNKNOWN
     Route: 065
     Dates: start: 201705, end: 201706
  10. METFORMIN HYDROCHLORIDE. [Concomitant]
     Active Substance: METFORMIN HYDROCHLORIDE
     Indication: DIABETES MELLITUS
     Route: 048
  11. HUMALOG MIX [Concomitant]
     Active Substance: INSULIN LISPRO
     Indication: DIABETES MELLITUS
     Route: 058

REACTIONS (2)
  - Hyperglycaemia [Recovered/Resolved]
  - Product quality issue [Unknown]
